FAERS Safety Report 25449478 (Version 1)
Quarter: 2025Q2

REPORT INFORMATION
  Report Type: Spontaneous
  Country: DE (occurrence: DE)
  Receive Date: 20250618
  Receipt Date: 20250618
  Transmission Date: 20250716
  Serious: Yes (Other)
  Sender: CELLTRION
  Company Number: DE-SAMSUNG BIOEPIS-SB-2025-01577

PATIENT

DRUGS (7)
  1. INFLIXIMAB [Suspect]
     Active Substance: INFLIXIMAB
     Indication: Ankylosing spondylitis
     Dates: start: 2012, end: 202107
  2. INFLIXIMAB [Suspect]
     Active Substance: INFLIXIMAB
     Indication: Axial spondyloarthritis
  3. SECUKINUMAB [Suspect]
     Active Substance: SECUKINUMAB
     Indication: Product used for unknown indication
     Dates: start: 202107
  4. GLATIRAMER [Suspect]
     Active Substance: GLATIRAMER
     Indication: Product used for unknown indication
     Dates: start: 202209
  5. VUMERITY [Suspect]
     Active Substance: DIROXIMEL FUMARATE
     Indication: Product used for unknown indication
     Dates: start: 202208, end: 202209
  6. TERIFLUNOMIDE [Concomitant]
     Active Substance: TERIFLUNOMIDE
     Indication: Product used for unknown indication
     Dates: start: 202112
  7. GUSELKUMAB [Concomitant]
     Active Substance: GUSELKUMAB
     Indication: Product used for unknown indication

REACTIONS (8)
  - Ankylosing spondylitis [Unknown]
  - Arthritis [Unknown]
  - Gastrointestinal disorder [Unknown]
  - Local reaction [Unknown]
  - Hypoaesthesia [Unknown]
  - Rash [Unknown]
  - Arthralgia [Unknown]
  - Off label use [Unknown]

NARRATIVE: CASE EVENT DATE: 20150101
